FAERS Safety Report 4606320-X (Version None)
Quarter: 2005Q1

REPORT INFORMATION
  Report Type: 
  Country: None (occurrence: None)
  Receive Date: 20050303
  Receipt Date: 20041231
  Transmission Date: 20050727
  Serious: No
  Sender: FDA-Public Use
  Company Number: 200421246BWH

PATIENT
  Age: 75 Year
  Sex: Male
  Weight: 82.5547 kg

DRUGS (7)
  1. LEVITRA [Suspect]
     Indication: ERECTILE DYSFUNCTION
     Dosage: 5 MG, TOTAL DAILY, ORAL
     Route: 048
     Dates: start: 20030101
  2. LEVITRA [Suspect]
     Dosage: 10 MG, TOTAL DAILY, ORAL
     Route: 048
  3. LEVITRA [Suspect]
     Dosage: 20 MG, TOTAIL DAILY, ORAL
     Route: 048
     Dates: start: 20041201
  4. GLUCOPHAGE [Concomitant]
  5. GLUCOTROL [Concomitant]
  6. LANOXIN [Concomitant]
  7. VITAMIN E [Concomitant]

REACTIONS (1)
  - ERECTILE DYSFUNCTION [None]
